FAERS Safety Report 17464022 (Version 1)
Quarter: 2020Q1

REPORT INFORMATION
  Report Type: Spontaneous
  Country: GB (occurrence: GB)
  Receive Date: 20200226
  Receipt Date: 20200226
  Transmission Date: 20200409
  Serious: Yes (Other)
  Sender: FDA-Public Use
  Company Number: GB-NAPPMUNDI-GBR-2020-0075260

PATIENT
  Age: 62 Year
  Sex: Female

DRUGS (1)
  1. OXYNORM [Suspect]
     Active Substance: OXYCODONE HYDROCHLORIDE
     Indication: PAIN
     Dosage: 160 MG, EVERY 10 HOURS (5MG IN MORNING, 5MG AFTERNOON, 15MG EARLY EVENING, 15MG EVENING)
     Route: 065

REACTIONS (6)
  - Somnolence [Unknown]
  - Miosis [Unknown]
  - Eye movement disorder [Unknown]
  - Speech disorder [Unknown]
  - Confusional state [Unknown]
  - Depressed level of consciousness [Unknown]

NARRATIVE: CASE EVENT DATE: 20190727
